FAERS Safety Report 9360590 (Version 3)
Quarter: 2014Q1

REPORT INFORMATION
  Report Type: Spontaneous
  Country: US (occurrence: US)
  Receive Date: 20130621
  Receipt Date: 20140327
  Transmission Date: 20141002
  Serious: Yes (Other)
  Sender: FDA-Public Use
  Company Number: US-BAYER-2013-073981

PATIENT
  Age: 31 Year
  Sex: Female
  Weight: 58.96 kg

DRUGS (4)
  1. MIRENA [Suspect]
     Indication: CONTRACEPTION
     Dosage: 20 MCG/24HR, CONT
     Route: 015
     Dates: start: 20111114, end: 20120612
  2. PROCARDIA [Concomitant]
     Dosage: 10 MG, UNK
  3. WELLBUTRIN XL [Concomitant]
     Indication: DEPRESSION
     Dosage: 300 MG, QD
     Dates: start: 2006, end: 2007
  4. WELLBUTRIN XL [Concomitant]
     Indication: DEPRESSION
     Dosage: 300 MG, QD
     Dates: start: 2009

REACTIONS (13)
  - Uterine perforation [None]
  - Pelvic pain [None]
  - Abdominal pain lower [None]
  - Abdominal discomfort [None]
  - Constipation [None]
  - Abdominal distension [None]
  - Injury [None]
  - Pain [None]
  - Emotional distress [None]
  - Anxiety [None]
  - Gait disturbance [None]
  - Stress [None]
  - Psychological trauma [None]
